FAERS Safety Report 9305972 (Version 1)
Quarter: 2013Q2

REPORT INFORMATION
  Report Type: Spontaneous
  Country: IT (occurrence: IT)
  Receive Date: 20130523
  Receipt Date: 20130523
  Transmission Date: 20140414
  Serious: Yes (Other)
  Sender: FDA-Public Use
  Company Number: PHHY2013IT051208

PATIENT
  Age: 19 Year
  Sex: Female

DRUGS (3)
  1. DELORAZEPAM [Suspect]
     Indication: DEPRESSION
     Dosage: 12 MG, QD
     Route: 048
     Dates: start: 20130426, end: 20130426
  2. SERTRALINE [Suspect]
     Indication: DEPRESSION
     Dosage: 100 MG, QD
     Route: 048
     Dates: start: 20130426, end: 20130426
  3. BROMAZEPAM [Suspect]
     Indication: DEPRESSION
     Dosage: 50 MG, QD
     Route: 048
     Dates: start: 20130303, end: 20130303

REACTIONS (3)
  - Personality disorder [Recovering/Resolving]
  - Drug abuse [Recovering/Resolving]
  - Suicide attempt [Recovering/Resolving]
